FAERS Safety Report 8318045-8 (Version None)
Quarter: 2012Q2

REPORT INFORMATION
  Report Type: 
  Country: None (occurrence: None)
  Receive Date: 20120427
  Receipt Date: 20120419
  Transmission Date: 20120825
  Serious: Yes (Other)
  Sender: FDA-Public Use
  Company Number: US-JNJFOC-20120409425

PATIENT
  Sex: Male
  Weight: 65.77 kg

DRUGS (8)
  1. XARELTO [Suspect]
     Indication: ATRIAL FIBRILLATION
     Route: 048
     Dates: start: 20120301, end: 20120401
  2. CADUET [Concomitant]
     Indication: ATRIAL FIBRILLATION
     Route: 048
  3. PRADAXA [Suspect]
     Indication: PRODUCT USED FOR UNKNOWN INDICATION
  4. WARFARIN SODIUM [Concomitant]
     Indication: ATRIAL FIBRILLATION
     Dates: end: 20120101
  5. FOLIC ACID [Concomitant]
     Indication: ATRIAL FIBRILLATION
     Route: 048
  6. VITAMIN B-12 [Concomitant]
     Route: 060
  7. LISINOPRIL [Concomitant]
     Indication: ATRIAL FIBRILLATION
     Route: 048
  8. METOPROLOL TARTRATE [Concomitant]
     Indication: ATRIAL FIBRILLATION
     Route: 048

REACTIONS (1)
  - RASH [None]
